FAERS Safety Report 4932865-9 (Version None)
Quarter: 2006Q1

REPORT INFORMATION
  Report Type: 
  Country: None (occurrence: None)
  Receive Date: 20060302
  Receipt Date: 20060302
  Transmission Date: 20060701
  Serious: Yes (Other)
  Sender: FDA-Public Use
  Company Number: None

PATIENT
  Sex: Male
  Weight: 89.8122 kg

DRUGS (1)
  1. CYMBALTA [Suspect]
     Dosage: 1 TAB   QD   PO
     Route: 048
     Dates: start: 20060201, end: 20060301

REACTIONS (2)
  - MICTURITION DISORDER [None]
  - URETHRAL DISCHARGE [None]
